FAERS Safety Report 7246433-X (Version None)
Quarter: 2011Q1

REPORT INFORMATION
  Report Type: 
  Country: None (occurrence: None)
  Receive Date: 20110126
  Receipt Date: 20110110
  Transmission Date: 20110831
  Serious: Yes (Hospitalization, Other)
  Sender: FDA-Public Use
  Company Number: US-ASTRAZENECA-2010SE36766

PATIENT
  Age: 81 Year
  Sex: Female

DRUGS (3)
  1. NEXIUM [Suspect]
     Indication: BARRETT'S OESOPHAGUS
     Route: 048
  2. INSULIN [Concomitant]
  3. CRESTOR [Suspect]
     Route: 048

REACTIONS (9)
  - HYPERTENSION [None]
  - TRANSIENT ISCHAEMIC ATTACK [None]
  - RENAL FAILURE CHRONIC [None]
  - IMPLANTABLE DEFIBRILLATOR INSERTION [None]
  - PLEURAL EFFUSION [None]
  - CARDIAC FAILURE CONGESTIVE [None]
  - PARATHYROID GLAND OPERATION [None]
  - CEREBROVASCULAR ACCIDENT [None]
  - PANCREATIC DISORDER [None]
